FAERS Safety Report 8063245-8 (Version None)
Quarter: 2012Q1

REPORT INFORMATION
  Report Type: 
  Country: None (occurrence: None)
  Receive Date: 20120123
  Receipt Date: 20120118
  Transmission Date: 20120608
  Serious: Yes (Other)
  Sender: FDA-Public Use
  Company Number: PHHY2012BR004957

PATIENT
  Sex: Male
  Weight: 88 kg

DRUGS (1)
  1. DIOVAN [Suspect]
     Indication: HYPERTENSION
     Dosage: 320 MG, ONE TABLET A DAY
     Route: 048

REACTIONS (1)
  - DIABETES MELLITUS [None]
